FAERS Safety Report 22250095 (Version 1)
Quarter: 2023Q2

REPORT INFORMATION
  Report Type: Spontaneous
  Country: US (occurrence: None)
  Receive Date: 20230424
  Receipt Date: 20230424
  Transmission Date: 20230722
  Serious: Yes (Other)
  Sender: FDA-Public Use
  Company Number: None

PATIENT
  Age: 75 Year
  Sex: Female
  Weight: 135.9 kg

DRUGS (16)
  1. KLOR-CON M10 [Suspect]
     Active Substance: POTASSIUM CHLORIDE
     Indication: Blood potassium decreased
     Dosage: 3 TABLETS TWICE A DAY ORAL
     Route: 048
     Dates: start: 20230214, end: 20230221
  2. TRAMADOL [Concomitant]
     Active Substance: TRAMADOL
  3. VENLAFAXINE [Concomitant]
  4. HYDROCHLOROTHIAZIDE [Concomitant]
     Active Substance: HYDROCHLOROTHIAZIDE
  5. LOSARTAN [Concomitant]
     Active Substance: LOSARTAN
  6. ALLERFLO [Concomitant]
  7. AFRIN [Concomitant]
     Active Substance: OXYMETAZOLINE
  8. CALCIUM\CHOLECALCIFEROL [Concomitant]
     Active Substance: CALCIUM\CHOLECALCIFEROL
  9. HERBALS\TURMERIC [Concomitant]
     Active Substance: HERBALS\TURMERIC
  10. CHROMIUM PICOLINATE [Concomitant]
  11. MULTI VIT [Concomitant]
  12. MILK THISTLE [Concomitant]
  13. VIT B [Concomitant]
  14. GUAIFENISEN [Concomitant]
  15. KRILL OIL [Concomitant]
  16. MELATONIN [Concomitant]
     Active Substance: MELATONIN

REACTIONS (5)
  - Dizziness [None]
  - Palpitations [None]
  - Headache [None]
  - Nausea [None]
  - Presyncope [None]

NARRATIVE: CASE EVENT DATE: 20230214
